FAERS Safety Report 4477494-9 (Version None)
Quarter: 2004Q4

REPORT INFORMATION
  Report Type: 
  Country: None (occurrence: None)
  Receive Date: 20041018
  Receipt Date: 20041010
  Transmission Date: 20050328
  Serious: Yes (Other)
  Sender: FDA-Public Use
  Company Number: US-GLAXOSMITHKLINE-A0529625A

PATIENT
  Sex: Male

DRUGS (1)
  1. PAXIL [Suspect]
     Indication: DRUG USE FOR UNKNOWN INDICATION
     Route: 048

REACTIONS (7)
  - AGGRESSION [None]
  - ASTHENIA [None]
  - EUPHORIC MOOD [None]
  - IMMOBILE [None]
  - MALAISE [None]
  - MANIA [None]
  - ROAD TRAFFIC ACCIDENT [None]
